FAERS Safety Report 5463892-3 (Version None)
Quarter: 2007Q3

REPORT INFORMATION
  Report Type: 
  Country: None (occurrence: None)
  Receive Date: 20070814
  Receipt Date: 20061012
  Transmission Date: 20080115
  Serious: Yes (Hospitalization)
  Sender: FDA-Public Use
  Company Number: MEDI-0005028

PATIENT
  Age: 8 Month
  Sex: Male

DRUGS (4)
  1. SYNAGIS [Suspect]
     Dates: start: 20060201, end: 20060201
  2. SYNAGIS [Suspect]
     Dates: start: 20060301
  3. SYNAGIS [Suspect]
     Dates: start: 20060401
  4. SYNAGIS [Suspect]
     Dates: start: 20060501

REACTIONS (1)
  - RESPIRATORY SYNCYTIAL VIRUS INFECTION [None]
